FAERS Safety Report 15240736 (Version 1)
Quarter: 2018Q3

REPORT INFORMATION
  Report Type: Spontaneous
  Country: FR (occurrence: FR)
  Receive Date: 20180804
  Receipt Date: 20180804
  Transmission Date: 20181010
  Serious: Yes (Other)
  Sender: FDA-Public Use
  Company Number: FR-AUROBINDO-AUR-APL-2018-038645

PATIENT
  Age: 28 Year
  Sex: Female

DRUGS (3)
  1. RITUXIMAB. [Suspect]
     Active Substance: RITUXIMAB
     Indication: ANTISYNTHETASE SYNDROME
     Dosage: UNK
     Route: 065
  2. AZATHIOPRINE. [Suspect]
     Active Substance: AZATHIOPRINE
     Indication: ANTISYNTHETASE SYNDROME
     Dosage: UNK
     Route: 065
  3. PREDNISONE. [Suspect]
     Active Substance: PREDNISONE
     Indication: ANTISYNTHETASE SYNDROME
     Dosage: UNK
     Route: 065

REACTIONS (1)
  - Pulmonary tuberculosis [Recovering/Resolving]
